FAERS Safety Report 6619757-4 (Version None)
Quarter: 2010Q1

REPORT INFORMATION
  Report Type: 
  Country: None (occurrence: None)
  Receive Date: 20100303
  Receipt Date: 20100222
  Transmission Date: 20100710
  Serious: Yes (Hospitalization)
  Sender: FDA-Public Use
  Company Number: 515950

PATIENT
  Age: 49 Year
  Sex: Male

DRUGS (2)
  1. METHOTREXATE [Suspect]
     Indication: PSORIATIC ARTHROPATHY
     Dosage: 7.5 MG, 1 WEEK
  2. (INFLIXIMAB) [Suspect]
     Indication: PSORIATIC ARTHROPATHY

REACTIONS (9)
  - CHEST DISCOMFORT [None]
  - EXTRADURAL ABSCESS [None]
  - MUSCLE CONTRACTIONS INVOLUNTARY [None]
  - MUSCULOSKELETAL STIFFNESS [None]
  - NECK PAIN [None]
  - PARAPLEGIA [None]
  - PYREXIA [None]
  - STAPHYLOCOCCAL ABSCESS [None]
  - URINARY RETENTION [None]
